FAERS Safety Report 6492103-5 (Version None)
Quarter: 2009Q4

REPORT INFORMATION
  Report Type: 
  Country: None (occurrence: None)
  Receive Date: 20091125
  Receipt Date: 20090518
  Transmission Date: 20100525
  Serious: Yes (Other)
  Sender: FDA-Public Use
  Company Number: 2009BH008484

PATIENT
  Age: 58 Year
  Sex: Female

DRUGS (11)
  1. DIANEAL [Suspect]
     Indication: PERITONEAL DIALYSIS
     Dosage: 14.5 L ; EVERY DAY ; IP
     Route: 033
     Dates: start: 20060206, end: 20090407
  2. DIANEAL [Suspect]
     Indication: PERITONEAL DIALYSIS
     Dosage: ; EVERY DAY ; IP
     Route: 033
     Dates: start: 20060206, end: 20090407
  3. ENALAPRIL [Concomitant]
  4. GENTAMICIN [Concomitant]
  5. ZANTAC [Concomitant]
  6. AMLODIPINE [Concomitant]
  7. CENTRUM [Concomitant]
  8. ASPIRIN [Concomitant]
  9. ROCALTROL [Concomitant]
  10. RENAGEL [Concomitant]
  11. SENSIPAR [Concomitant]

REACTIONS (1)
  - PERITONITIS BACTERIAL [None]
